FAERS Safety Report 14986439 (Version 2)
Quarter: 2018Q3

REPORT INFORMATION
  Report Type: Spontaneous
  Country: US (occurrence: US)
  Receive Date: 20180607
  Receipt Date: 20180823
  Transmission Date: 20181010
  Serious: Yes (Other)
  Sender: FDA-Public Use
  Company Number: US-BRISTOL-MYERS SQUIBB COMPANY-BMS-2018-050876

PATIENT

DRUGS (2)
  1. OPDIVO [Suspect]
     Active Substance: NIVOLUMAB
     Indication: SMALL CELL LUNG CANCER
     Dosage: UNKNOWN
     Route: 065
  2. YERVOY [Suspect]
     Active Substance: IPILIMUMAB
     Indication: SMALL CELL LUNG CANCER
     Route: 065

REACTIONS (2)
  - Metastases to central nervous system [Unknown]
  - Product use in unapproved indication [Unknown]
